FAERS Safety Report 7618738-1 (Version None)
Quarter: 2011Q3

REPORT INFORMATION
  Report Type: 
  Country: None (occurrence: None)
  Receive Date: 20110718
  Receipt Date: 20110711
  Transmission Date: 20111222
  Serious: Yes (Other)
  Sender: FDA-Public Use
  Company Number: US-SANOFI-AVENTIS-2011SA037816

PATIENT
  Age: 75 Year
  Sex: Female

DRUGS (2)
  1. LANTUS [Suspect]
     Dosage: 11-14 U DAY
     Route: 058
  2. OPTICLICK [Suspect]

REACTIONS (3)
  - VISUAL IMPAIRMENT [None]
  - EYE INFECTION [None]
  - GLAUCOMA [None]
